FAERS Safety Report 7295274-6 (Version None)
Quarter: 2011Q1

REPORT INFORMATION
  Report Type: 
  Country: None (occurrence: None)
  Receive Date: 20110216
  Receipt Date: 20110215
  Transmission Date: 20110831
  Serious: Yes (Death)
  Sender: FDA-Public Use
  Company Number: JP-PFIZER INC-2011033576

PATIENT
  Sex: Female

DRUGS (1)
  1. HALCION [Suspect]
     Dosage: UNK
     Route: 048
     Dates: start: 20100801

REACTIONS (1)
  - DEATH [None]
